FAERS Safety Report 25714705 (Version 1)
Quarter: 2025Q3

REPORT INFORMATION
  Report Type: Spontaneous
  Country: CN (occurrence: CN)
  Receive Date: 20250822
  Receipt Date: 20250822
  Transmission Date: 20251021
  Serious: Yes (Life-Threatening, Hospitalization)
  Sender: NOVARTIS
  Company Number: CN-002147023-NVSC2025CN131836

PATIENT
  Age: 62 Year
  Sex: Male

DRUGS (1)
  1. CARBAMAZEPINE [Suspect]
     Active Substance: CARBAMAZEPINE
     Indication: Post-traumatic neuralgia
     Dosage: 200.000 MG, BID
     Route: 048
     Dates: start: 20250707, end: 20250718

REACTIONS (3)
  - Toxic epidermal necrolysis [Recovering/Resolving]
  - Pyrexia [Unknown]
  - Skin ulcer [Recovering/Resolving]

NARRATIVE: CASE EVENT DATE: 20250718
